FAERS Safety Report 7065781-X (Version None)
Quarter: 2010Q4

REPORT INFORMATION
  Report Type: 
  Country: None (occurrence: None)
  Receive Date: 20101027
  Receipt Date: 20101014
  Transmission Date: 20110411
  Serious: Yes (Hospitalization)
  Sender: FDA-Public Use
  Company Number: BR-AMGEN-US361162

PATIENT
  Sex: Female

DRUGS (8)
  1. DENOSUMAB [Suspect]
     Indication: METASTASES TO BONE
     Dosage: UNK BLINDED, Q4WK
     Route: 058
     Dates: start: 20070809, end: 20090514
  2. SPIRONOLACTONE [Concomitant]
     Dosage: 25 MG, QD
     Route: 048
     Dates: start: 19900101
  3. METHYLDOPA [Concomitant]
     Dosage: 250 MG, QD
     Route: 048
     Dates: start: 19900101
  4. ANASTROZOLE [Concomitant]
     Dosage: 180 MG, QD
     Route: 048
     Dates: start: 20070501
  5. ERGOCALCIFEROL [Concomitant]
     Dosage: 400 IU, QD
     Route: 048
     Dates: start: 20070809
  6. DICLOFENAC SODIUM [Concomitant]
     Dosage: UNK UNK, PRN
     Route: 065
     Dates: start: 20080908
  7. CALCIUM [Concomitant]
     Dosage: 1000 MG, QD
     Route: 048
     Dates: start: 20070809
  8. PLACEBO [Suspect]

REACTIONS (1)
  - OSTEONECROSIS OF JAW [None]
